FAERS Safety Report 7249487-X (Version None)
Quarter: 2011Q1

REPORT INFORMATION
  Report Type: 
  Country: None (occurrence: None)
  Receive Date: 20110128
  Receipt Date: 20101217
  Transmission Date: 20110831
  Serious: Yes (Hospitalization)
  Sender: FDA-Public Use
  Company Number: FR-BAYER-2010-006150

PATIENT
  Sex: Female

DRUGS (1)
  1. MIRENA [Suspect]
     Dosage: 20 ?G, CONT
     Route: 015
     Dates: start: 20101021

REACTIONS (4)
  - DEVICE DISLOCATION [None]
  - PRESYNCOPE [None]
  - PROCEDURAL PAIN [None]
  - UTERINE PERFORATION [None]
